FAERS Safety Report 4471434-4 (Version None)
Quarter: 2004Q4

REPORT INFORMATION
  Report Type: 
  Country: None (occurrence: None)
  Receive Date: 20041012
  Receipt Date: 20040820
  Transmission Date: 20050328
  Serious: Yes (Other)
  Sender: FDA-Public Use
  Company Number: 200416315US

PATIENT
  Age: 44 Year
  Sex: Female

DRUGS (2)
  1. ARAVA [Suspect]
     Dosage: DOSE: UNKNOWN
  2. ENBREL [Suspect]
     Dosage: DOSE: UNKNOWN

REACTIONS (1)
  - LIVER FUNCTION TEST ABNORMAL [None]
